FAERS Safety Report 10036091 (Version 3)
Quarter: 2014Q2

REPORT INFORMATION
  Report Type: Spontaneous
  Country: US (occurrence: US)
  Receive Date: 20140325
  Receipt Date: 20140528
  Transmission Date: 20141212
  Serious: Yes (Other)
  Sender: FDA-Public Use
  Company Number: US-PFIZER INC-2014082803

PATIENT
  Age: 55 Year
  Sex: Male

DRUGS (2)
  1. INLYTA [Suspect]
     Indication: NEOPLASM MALIGNANT
     Dosage: 5 MG, 1X/DAY
     Dates: start: 20140222
  2. INLYTA [Suspect]
     Dosage: 7 MG, 1X/DAY
     Route: 048
     Dates: start: 20140222, end: 201404

REACTIONS (5)
  - Diabetes mellitus inadequate control [Unknown]
  - Malaise [Unknown]
  - Pain [Unknown]
  - Disease progression [Unknown]
  - Neoplasm malignant [Unknown]
